FAERS Safety Report 25549528 (Version 1)
Quarter: 2025Q3

REPORT INFORMATION
  Report Type: Spontaneous
  Country: CA (occurrence: CA)
  Receive Date: 20250714
  Receipt Date: 20250714
  Transmission Date: 20251020
  Serious: Yes (Other)
  Sender: FRESENIUS KABI
  Company Number: CA-FreseniusKabi-FK202509494

PATIENT
  Age: 79 Year
  Sex: Male

DRUGS (1)
  1. MORPHINE [Suspect]
     Active Substance: MORPHINE
     Indication: Product used for unknown indication
     Route: 065

REACTIONS (1)
  - Anaphylactic reaction [Unknown]
